FAERS Safety Report 17661581 (Version 1)
Quarter: 2020Q2

REPORT INFORMATION
  Report Type: Spontaneous
  Country: US (occurrence: US)
  Receive Date: 20200413
  Receipt Date: 20200413
  Transmission Date: 20200713
  Serious: Yes (Disabling, Other)
  Sender: FDA-Public Use
  Company Number: None

PATIENT
  Age: 74 Year
  Sex: Female
  Weight: 54 kg

DRUGS (4)
  1. ARMOUR THYROID [Concomitant]
     Active Substance: THYROID, PORCINE
  2. POTASSIUM [Concomitant]
     Active Substance: POTASSIUM
  3. CIPROFLOXACIN 250MG [Suspect]
     Active Substance: CIPROFLOXACIN
     Indication: DIVERTICULITIS
     Dosage: ?          QUANTITY:24 CAPSULE(S);?
     Route: 048
     Dates: start: 20190809, end: 20190820
  4. CIPROFLOXACIN 250MG [Suspect]
     Active Substance: CIPROFLOXACIN
     Indication: COLITIS
     Dosage: ?          QUANTITY:24 CAPSULE(S);?
     Route: 048
     Dates: start: 20190809, end: 20190820

REACTIONS (16)
  - Dyspnoea [None]
  - Product complaint [None]
  - Arthralgia [None]
  - Diarrhoea [None]
  - Myalgia [None]
  - Muscle spasms [None]
  - Paraesthesia [None]
  - Cardiac flutter [None]
  - Hypokinesia [None]
  - Back pain [None]
  - Joint noise [None]
  - Headache [None]
  - Chills [None]
  - Eye irritation [None]
  - Tendon pain [None]
  - Fatigue [None]

NARRATIVE: CASE EVENT DATE: 20190809
